FAERS Safety Report 21611358 (Version 5)
Quarter: 2022Q4

REPORT INFORMATION
  Report Type: Report from Study
  Country: US (occurrence: US)
  Receive Date: 20221117
  Receipt Date: 20221223
  Transmission Date: 20230113
  Serious: Yes (Life-Threatening, Hospitalization)
  Sender: FDA-Public Use
  Company Number: US-KARYOPHARM-2022KPT001402

PATIENT
  Age: 66 Year
  Sex: Female
  Weight: 64.4 kg

DRUGS (4)
  1. SELINEXOR [Suspect]
     Active Substance: SELINEXOR
     Indication: Plasma cell myeloma
     Dosage: 80 MG, ON DAYS 1, 8, AND 15 OF EACH 28-DAY CYCLE
     Route: 048
     Dates: start: 20220919, end: 20221101
  2. SELINEXOR [Suspect]
     Active Substance: SELINEXOR
     Dosage: 80 MG, ON DAYS 1, 8, AND 15 OF EACH 28-DAY CYCLE
     Route: 048
     Dates: start: 20221102, end: 20221114
  3. DARATUMUMAB [Suspect]
     Active Substance: DARATUMUMAB
     Indication: Plasma cell myeloma
     Dosage: 1800 MG, ON DAYS 1, 8, 15, AND 22 OF C1+C2; DAY 1 AND 15 OF C3-C6; AND D1 OF C}6
     Route: 058
     Dates: start: 20220919, end: 20221114
  4. DEXAMETHASONE [Suspect]
     Active Substance: DEXAMETHASONE
     Indication: Plasma cell myeloma
     Dosage: 40 MG, ON DAY 1, 8, 15, AND 22 OF EACH 28-DAY CYCLE
     Route: 042
     Dates: start: 20220919, end: 20221114

REACTIONS (1)
  - Sepsis [Recovered/Resolved]

NARRATIVE: CASE EVENT DATE: 20221113
